FAERS Safety Report 11064542 (Version 6)
Quarter: 2015Q3

REPORT INFORMATION
  Report Type: Spontaneous
  Country: US (occurrence: US)
  Receive Date: 20150424
  Receipt Date: 20150728
  Transmission Date: 20151125
  Serious: Yes (Hospitalization)
  Sender: FDA-Public Use
  Company Number: US-GLAXOSMITHKLINE-A0979325A

PATIENT
  Age: 51 Year
  Sex: Female

DRUGS (12)
  1. VENTOLIN HFA [Suspect]
     Active Substance: ALBUTEROL SULFATE
     Indication: MULTIPLE ALLERGIES
     Dosage: UNK UNK, U
     Dates: start: 2000
  2. VENTOLIN HFA [Suspect]
     Active Substance: ALBUTEROL SULFATE
     Dosage: UNK
  3. BENADRYL [Concomitant]
     Active Substance: DIPHENHYDRAMINE HYDROCHLORIDE
  4. VENTOLIN HFA [Suspect]
     Active Substance: ALBUTEROL SULFATE
     Indication: ASTHMA
     Dosage: UNK, PRN
     Route: 055
     Dates: start: 1994
  5. ADVAIR DISKUS [Suspect]
     Active Substance: FLUTICASONE PROPIONATE\SALMETEROL XINAFOATE
     Indication: ASTHMA
     Dosage: 100/50 MCG
     Dates: end: 2012
  6. ADVAIR HFA [Suspect]
     Active Substance: FLUTICASONE PROPIONATE\SALMETEROL XINAFOATE
     Indication: BRONCHITIS CHRONIC
  7. PRIMATENE [Concomitant]
     Active Substance: EPHEDRINE HYDROCHLORIDE\GUAIFENESIN
  8. ADVAIR DISKUS [Suspect]
     Active Substance: FLUTICASONE PROPIONATE\SALMETEROL XINAFOATE
     Indication: ASTHMA
     Dosage: 1 PUFF(S), BID, 250/50 MCG
     Route: 055
  9. DUONEB [Concomitant]
     Active Substance: ALBUTEROL SULFATE\IPRATROPIUM BROMIDE
  10. VENTOLIN HFA [Suspect]
     Active Substance: ALBUTEROL SULFATE
     Indication: ASTHMA
     Dosage: UNK
  11. ADVAIR HFA [Suspect]
     Active Substance: FLUTICASONE PROPIONATE\SALMETEROL XINAFOATE
     Indication: ASTHMA
     Dosage: 1 PUFF(S), BID
     Route: 055
     Dates: start: 201105
  12. IRON [Concomitant]
     Active Substance: IRON

REACTIONS (23)
  - Anaemia [Not Recovered/Not Resolved]
  - Emergency care examination [Unknown]
  - Drug administration error [Unknown]
  - Milk allergy [Unknown]
  - Hypertension [Unknown]
  - Drug dose omission [Unknown]
  - Oral fungal infection [Not Recovered/Not Resolved]
  - Arthralgia [Recovered/Resolved]
  - Palatal disorder [Unknown]
  - Asthma [Unknown]
  - Wheezing [Recovered/Resolved]
  - Visual impairment [Not Recovered/Not Resolved]
  - Intentional overdose [Unknown]
  - Sputum increased [Unknown]
  - Pyrexia [Unknown]
  - Panic attack [Unknown]
  - Limb injury [Unknown]
  - Dyspnoea [Unknown]
  - Bronchitis [Unknown]
  - Intentional product use issue [Unknown]
  - Hypersensitivity [Unknown]
  - Nasopharyngitis [Not Recovered/Not Resolved]
  - Urticaria [Recovered/Resolved]

NARRATIVE: CASE EVENT DATE: 2011
